FAERS Safety Report 6691393-3 (Version None)
Quarter: 2010Q2

REPORT INFORMATION
  Report Type: 
  Country: None (occurrence: None)
  Receive Date: 20100416
  Receipt Date: 20100401
  Transmission Date: 20101027
  Serious: Yes (Hospitalization)
  Sender: FDA-Public Use
  Company Number: A-CH2010-35431

PATIENT
  Age: 35 Year
  Sex: Female

DRUGS (2)
  1. TRACLEER [Suspect]
     Indication: DRUG USE FOR UNKNOWN INDICATION
     Dosage: 125 MG; ORAL
     Route: 048
  2. WARFARIN SODIUM [Concomitant]

REACTIONS (1)
  - INFECTION [None]
